FAERS Safety Report 7379252-4 (Version None)
Quarter: 2011Q1

REPORT INFORMATION
  Report Type: 
  Country: None (occurrence: None)
  Receive Date: 20110328
  Receipt Date: 20110204
  Transmission Date: 20110831
  Serious: Yes (Death)
  Sender: FDA-Public Use
  Company Number: DE-AMGEN-DEUCT2010006081

PATIENT
  Age: 60 Year
  Sex: Female
  Weight: 48.1 kg

DRUGS (2)
  1. PAMIFOS [Concomitant]
     Dosage: 90 MG, 4 TIMES/WK
     Dates: start: 20101009, end: 20101106
  2. PANITUMUMAB [Suspect]
     Indication: COLORECTAL CANCER
     Dosage: 289.80 MG, UNK
     Route: 042
     Dates: start: 20100924, end: 20101105

REACTIONS (1)
  - NEOPLASM PROGRESSION [None]
